FAERS Safety Report 12674397 (Version 1)
Quarter: 2016Q3

REPORT INFORMATION
  Report Type: Spontaneous
  Country: US (occurrence: US)
  Receive Date: 20160823
  Receipt Date: 20160823
  Transmission Date: 20161109
  Serious: No
  Sender: FDA-Public Use
  Company Number: US-FRI-1000084357

PATIENT
  Sex: Male

DRUGS (2)
  1. SAPHRIS [Suspect]
     Active Substance: ASENAPINE MALEATE
     Dosage: 2.5MG TABLET, 1/2 TABLET DAILY
     Dates: start: 201604, end: 20160428
  2. SAPHRIS [Suspect]
     Active Substance: ASENAPINE MALEATE
     Indication: INSOMNIA
     Dosage: 2.5 MG
     Dates: start: 20160422, end: 201604

REACTIONS (5)
  - Eructation [Recovered/Resolved]
  - Off label use [Recovered/Resolved]
  - Intentional product misuse [Recovered/Resolved]
  - Flatulence [Recovered/Resolved]
  - Change of bowel habit [Recovered/Resolved]

NARRATIVE: CASE EVENT DATE: 201604
